FAERS Safety Report 10258160 (Version 3)
Quarter: 2014Q3

REPORT INFORMATION
  Report Type: Spontaneous
  Country: US (occurrence: None)
  Receive Date: 20140623
  Receipt Date: 20140730
  Transmission Date: 20150326
  Serious: Yes (Death, Life-Threatening, Hospitalization, Other)
  Sender: FDA-Public Use
  Company Number: UNT-2014-002255

PATIENT
  Age: 30 Year
  Sex: Female
  Weight: 124.2 kg

DRUGS (4)
  1. TRACLEER [Concomitant]
     Active Substance: BOSENTAN\BOSENTAN MONOHYDRATE
  2. ADCIRCA [Concomitant]
     Active Substance: TADALAFIL
  3. REMODULIN [Suspect]
     Active Substance: TREPROSTINIL
     Indication: PULMONARY ARTERIAL HYPERTENSION
     Dosage: CONTINUING
     Route: 058
     Dates: start: 20050406
  4. COUMADIN [Concomitant]
     Active Substance: WARFARIN SODIUM

REACTIONS (6)
  - Respiratory failure [None]
  - Hypoxic-ischaemic encephalopathy [None]
  - Sleep apnoea syndrome [None]
  - Tracheostomy malfunction [None]
  - Pneumonia [None]
  - Cardiac arrest [None]
